FAERS Safety Report 10197297 (Version 2)
Quarter: 2014Q2

REPORT INFORMATION
  Report Type: Spontaneous
  Country: JP (occurrence: JP)
  Receive Date: 20140527
  Receipt Date: 20140604
  Transmission Date: 20141212
  Serious: Yes (Hospitalization)
  Sender: FDA-Public Use
  Company Number: JP-GLAXOSMITHKLINE-B0996537A

PATIENT
  Age: 23 Year
  Sex: Male

DRUGS (1)
  1. LAMICTAL [Suspect]
     Indication: BIPOLAR DISORDER
     Route: 048
     Dates: start: 2013

REACTIONS (5)
  - Psychiatric symptom [Unknown]
  - Bipolar disorder [Unknown]
  - Rash [Recovered/Resolved]
  - Rash [Recovered/Resolved]
  - Treatment noncompliance [Unknown]
